FAERS Safety Report 24583815 (Version 1)
Quarter: 2024Q4

REPORT INFORMATION
  Report Type: Spontaneous
  Country: MX (occurrence: MX)
  Receive Date: 20241106
  Receipt Date: 20241106
  Transmission Date: 20250114
  Serious: Yes (Other)
  Sender: ACCORD
  Company Number: MX-MLMSERVICE-20241021-PI229757-00218-1

PATIENT
  Age: 59 Year
  Sex: Male

DRUGS (3)
  1. METHOTREXATE [Suspect]
     Active Substance: METHOTREXATE
     Indication: Rheumatoid arthritis
  2. BARICITINIB [Suspect]
     Active Substance: BARICITINIB
     Indication: Rheumatoid arthritis
  3. DEFLAZACORT [Suspect]
     Active Substance: DEFLAZACORT
     Indication: Rheumatoid arthritis

REACTIONS (1)
  - Kaposi^s sarcoma [Recovered/Resolved with Sequelae]
